FAERS Safety Report 13563079 (Version 2)
Quarter: 2017Q4

REPORT INFORMATION
  Report Type: Report from Study
  Country: US (occurrence: US)
  Receive Date: 20170519
  Receipt Date: 20171128
  Transmission Date: 20180320
  Serious: Yes (Hospitalization, Other)
  Sender: FDA-Public Use
  Company Number: PHEH2017US014813

PATIENT
  Age: 71 Year
  Sex: Female

DRUGS (1)
  1. GLEEVEC [Suspect]
     Active Substance: IMATINIB MESYLATE
     Indication: PRODUCT USED FOR UNKNOWN INDICATION
     Dosage: UNK
     Route: 065

REACTIONS (4)
  - Pneumonia [Unknown]
  - Road traffic accident [Unknown]
  - Respiratory disorder [Unknown]
  - Memory impairment [Unknown]

NARRATIVE: CASE EVENT DATE: 201607
